FAERS Safety Report 9281229 (Version 1)
Quarter: 2013Q2

REPORT INFORMATION
  Report Type: Spontaneous
  Country: US (occurrence: US)
  Receive Date: 20130509
  Receipt Date: 20130509
  Transmission Date: 20140414
  Serious: Yes (Other)
  Sender: FDA-Public Use
  Company Number: US-ABBOTT-13P-163-1086486-00

PATIENT
  Sex: Male

DRUGS (4)
  1. HUMIRA [Suspect]
     Indication: CROHN^S DISEASE
     Dates: start: 2011, end: 2012
  2. HUMIRA [Suspect]
     Dates: start: 2012, end: 201304
  3. HUMIRA [Suspect]
     Dates: start: 201304
  4. OPIOD [Concomitant]
     Indication: PAIN MANAGEMENT

REACTIONS (5)
  - Large intestinal stenosis [Recovered/Resolved]
  - Folliculitis [Not Recovered/Not Resolved]
  - Rash pustular [Not Recovered/Not Resolved]
  - Skin mass [Not Recovered/Not Resolved]
  - Crohn^s disease [Not Recovered/Not Resolved]
